FAERS Safety Report 9033461 (Version 1)
Quarter: 2013Q1

REPORT INFORMATION
  Report Type: Spontaneous
  Country: DE (occurrence: DE)
  Receive Date: 20130128
  Receipt Date: 20130128
  Transmission Date: 20140127
  Serious: Yes (Hospitalization)
  Sender: FDA-Public Use
  Company Number: DE-AMGEN-UK049156

PATIENT
  Age: 48 Year
  Sex: Female
  Weight: 63.5 kg

DRUGS (8)
  1. ARANESP [Suspect]
     Indication: DIALYSIS
     Dosage: 10 ?G, QWK
     Route: 042
     Dates: start: 20020313, end: 20030417
  2. NITRENDIPINE [Concomitant]
  3. LEVOTHYROXINE SODIUM [Concomitant]
  4. FUROSEMIDE [Concomitant]
  5. METOPROLOL [Concomitant]
  6. ATORVASTATIN [Concomitant]
  7. CARBAMAZEPINE [Concomitant]
     Dosage: UNK UNK, UNK
     Dates: start: 200112
  8. SODIUM FERRIC GLUCONATE COMPLEX [Concomitant]
     Dosage: UNK UNK, UNK
     Dates: start: 200105

REACTIONS (2)
  - Convulsion [Recovered/Resolved]
  - Grand mal convulsion [Unknown]
